FAERS Safety Report 9640312 (Version 1)
Quarter: 2013Q4

REPORT INFORMATION
  Report Type: Spontaneous
  Country: US (occurrence: US)
  Receive Date: 20131023
  Receipt Date: 20131023
  Transmission Date: 20140711
  Serious: No
  Sender: FDA-Public Use
  Company Number: US-TEVA-439398USA

PATIENT
  Sex: Female

DRUGS (1)
  1. FENTORA [Suspect]
     Route: 002

REACTIONS (1)
  - Gingival disorder [Unknown]
